FAERS Safety Report 9246938 (Version 1)
Quarter: 2013Q2

REPORT INFORMATION
  Report Type: Spontaneous
  Country: US (occurrence: US)
  Receive Date: 20130422
  Receipt Date: 20130422
  Transmission Date: 20140414
  Serious: No
  Sender: FDA-Public Use
  Company Number: US-ASTRAZENECA-2013SE22177

PATIENT
  Age: 52 Year
  Sex: Male
  Weight: 106.6 kg

DRUGS (2)
  1. NEXIUM [Suspect]
     Indication: GASTROOESOPHAGEAL REFLUX DISEASE
     Route: 048
     Dates: start: 201212
  2. PRILOSEC [Suspect]
     Indication: GASTROOESOPHAGEAL REFLUX DISEASE
     Route: 048
     Dates: start: 2009

REACTIONS (4)
  - Dysphagia [Recovering/Resolving]
  - Adverse event [Recovering/Resolving]
  - Drug ineffective [Recovered/Resolved]
  - Intentional drug misuse [Recovering/Resolving]
